FAERS Safety Report 11594694 (Version 1)
Quarter: 2015Q4

REPORT INFORMATION
  Report Type: Report from Study
  Country: AU (occurrence: AU)
  Receive Date: 20151005
  Receipt Date: 20151005
  Transmission Date: 20160304
  Serious: Yes (Hospitalization, Other)
  Sender: FDA-Public Use
  Company Number: PHHY2013AU149703

PATIENT
  Age: 53 Year
  Sex: Male

DRUGS (1)
  1. CLOZARIL [Suspect]
     Active Substance: CLOZAPINE
     Indication: PRODUCT USED FOR UNKNOWN INDICATION
     Dosage: 162.5 MG, QD
     Route: 065
     Dates: start: 20091021, end: 20131218

REACTIONS (7)
  - Cytopenia [Unknown]
  - Sepsis [Unknown]
  - Pneumonia [Unknown]
  - Antipsychotic drug level increased [Recovered/Resolved]
  - Leukopenia [Recovered/Resolved]
  - Lower respiratory tract infection [Unknown]
  - Neutropenia [Recovered/Resolved]

NARRATIVE: CASE EVENT DATE: 20130311
